FAERS Safety Report 23627209 (Version 1)
Quarter: 2024Q1

REPORT INFORMATION
  Report Type: Report from Study
  Country: US (occurrence: US)
  Receive Date: 20240313
  Receipt Date: 20240313
  Transmission Date: 20240409
  Serious: No
  Sender: FDA-Public Use
  Company Number: US-SPRINGWORKS THERAPEUTICS-SW-001210

PATIENT
  Age: 76 Year
  Sex: Male

DRUGS (1)
  1. NIROGACESTAT [Suspect]
     Active Substance: NIROGACESTAT
     Indication: Product used for unknown indication
     Dosage: 150 MILLIGRAM, BID
     Route: 048

REACTIONS (4)
  - Pruritus [Unknown]
  - Insomnia [Unknown]
  - Eye discharge [Unknown]
  - Alopecia [Unknown]

NARRATIVE: CASE EVENT DATE: 20231221
